FAERS Safety Report 10012704 (Version 1)
Quarter: 2014Q1

REPORT INFORMATION
  Report Type: Spontaneous
  Country: US (occurrence: US)
  Receive Date: 20140314
  Receipt Date: 20140314
  Transmission Date: 20141002
  Serious: Yes (Other)
  Sender: FDA-Public Use
  Company Number: US-ELI_LILLY_AND_COMPANY-US201403001332

PATIENT
  Sex: Female

DRUGS (9)
  1. HUMALOG LISPRO [Suspect]
     Indication: DIABETES MELLITUS
     Dosage: 22 U, UNK
     Route: 065
     Dates: start: 2006
  2. XANAX [Concomitant]
     Dosage: 1 DF, PRN
  3. METOPROLOL [Concomitant]
  4. CRESTOR [Concomitant]
  5. CALCIUM [Concomitant]
  6. CRANBERRY                          /01512301/ [Concomitant]
  7. CINNAMON                           /01647501/ [Concomitant]
  8. BABY ASPIRIN [Concomitant]
  9. NITROFURANTOIN [Concomitant]

REACTIONS (5)
  - Dementia Alzheimer^s type [Not Recovered/Not Resolved]
  - Poor peripheral circulation [Not Recovered/Not Resolved]
  - Stress [Not Recovered/Not Resolved]
  - Visual acuity reduced [Not Recovered/Not Resolved]
  - Incorrect dose administered [Unknown]
